FAERS Safety Report 26000497 (Version 1)
Quarter: 2025Q4

REPORT INFORMATION
  Report Type: Spontaneous
  Country: US (occurrence: None)
  Receive Date: 20251104
  Receipt Date: 20251104
  Transmission Date: 20260118
  Serious: Yes (Other)
  Sender: FDA-CTU
  Company Number: None

PATIENT
  Age: 28 Year
  Sex: Female
  Weight: 72 kg

DRUGS (6)
  1. UBRELVY [Suspect]
     Active Substance: UBROGEPANT
     Indication: Migraine
     Dates: start: 20250908, end: 20251001
  2. ADDERALL [Concomitant]
     Active Substance: AMPHETAMINE ASPARTATE\AMPHETAMINE SULFATE\DEXTROAMPHETAMINE SACCHARATE\DEXTROAMPHETAMINE SULFATE
  3. QULIPTA [Concomitant]
     Active Substance: ATOGEPANT
  4. SPIRONOLACTONE [Concomitant]
     Active Substance: SPIRONOLACTONE
  5. MAGNESIUM [Concomitant]
     Active Substance: MAGNESIUM
  6. women^s vitamin gummies [Concomitant]

REACTIONS (9)
  - Palpitations [None]
  - Peripheral swelling [None]
  - Peripheral swelling [None]
  - Peripheral coldness [None]
  - Paraesthesia [None]
  - Paraesthesia [None]
  - Vascular pain [None]
  - Gait disturbance [None]
  - Oedema peripheral [None]

NARRATIVE: CASE EVENT DATE: 20251001
